FAERS Safety Report 6022066-8 (Version None)
Quarter: 2008Q4

REPORT INFORMATION
  Report Type: 
  Country: None (occurrence: None)
  Receive Date: 20081229
  Receipt Date: 20081217
  Transmission Date: 20090506
  Serious: Yes (Other)
  Sender: FDA-Public Use
  Company Number: GB-PFIZER INC-2008150869

PATIENT

DRUGS (4)
  1. PHENYTOIN SODIUM CAP [Suspect]
     Indication: EPILEPSY
     Dosage: 100 MG, UNK
     Route: 048
  2. VALSARTAN [Concomitant]
     Dosage: 80 MG, 1X/DAY
     Route: 048
  3. DOSULEPIN [Concomitant]
     Dosage: 25 MG, 1X/DAY
     Route: 048
  4. OMEPRAZOLE [Concomitant]
     Dosage: 20 MG, 1X/DAY
     Route: 048

REACTIONS (2)
  - ILEOSTOMY [None]
  - MEDICATION RESIDUE [None]
